FAERS Safety Report 7953904-7 (Version None)
Quarter: 2011Q4

REPORT INFORMATION
  Report Type: 
  Country: None (occurrence: None)
  Receive Date: 20111129
  Receipt Date: 20111121
  Transmission Date: 20120403
  Serious: Yes (Death)
  Sender: FDA-Public Use
  Company Number: 2011US000094

PATIENT
  Age: 79 Year
  Sex: Male
  Weight: 88 kg

DRUGS (5)
  1. METFORMIN HCL [Concomitant]
  2. GLIPIZIDE [Concomitant]
  3. SIMVASTATIN [Concomitant]
  4. ENTEREG [Suspect]
     Indication: POSTOPERATIVE ILEUS
     Dosage: 12 MG; PO
     Route: 048
     Dates: start: 20110617, end: 20110618
  5. MAXZIDE [Concomitant]

REACTIONS (6)
  - CARDIAC ARREST [None]
  - COLON CANCER [None]
  - METABOLIC ACIDOSIS [None]
  - VENTRICULAR FIBRILLATION [None]
  - HYPOTHERMIA [None]
  - RESPIRATORY FAILURE [None]
